FAERS Safety Report 7763083-7 (Version None)
Quarter: 2011Q3

REPORT INFORMATION
  Report Type: 
  Country: None (occurrence: None)
  Receive Date: 20110920
  Receipt Date: 20110914
  Transmission Date: 20111222
  Serious: Yes (Other)
  Sender: FDA-Public Use
  Company Number: US-PFIZER INC-2011217691

PATIENT
  Sex: Female
  Weight: 48.98 kg

DRUGS (8)
  1. LEVOTHYROXINE [Concomitant]
     Indication: HYPOTHYROIDISM
     Dosage: 0.075 MG
  2. CLONAZEPAM [Concomitant]
     Indication: DEPRESSION
     Dosage: UNK
  3. ACETYLSALICYLIC ACID [Concomitant]
     Indication: NECK PAIN
     Dosage: UNK
  4. LYRICA [Suspect]
     Indication: BACK PAIN
  5. LYRICA [Suspect]
     Indication: PAIN IN EXTREMITY
  6. ACETYLSALICYLIC ACID [Concomitant]
     Indication: PAIN IN EXTREMITY
  7. LYRICA [Suspect]
     Indication: NECK PAIN
     Dosage: 50 MG, 1X/DAY
     Route: 048
     Dates: start: 20110908
  8. ACETYLSALICYLIC ACID [Concomitant]
     Indication: BACK PAIN

REACTIONS (2)
  - ACTIVITIES OF DAILY LIVING IMPAIRED [None]
  - IMPAIRED DRIVING ABILITY [None]
